FAERS Safety Report 5545281-6 (Version None)
Quarter: 2007Q4

REPORT INFORMATION
  Report Type: 
  Country: None (occurrence: None)
  Receive Date: 20071211
  Receipt Date: 20071203
  Transmission Date: 20080405
  Serious: Yes (Other)
  Sender: FDA-Public Use
  Company Number: PHBS2007RU20525

PATIENT
  Age: 26 Year
  Sex: Male

DRUGS (1)
  1. VOLTAREN [Suspect]
     Indication: RHEUMATIC FEVER

REACTIONS (3)
  - BLOOD CREATINE PHOSPHOKINASE INCREASED [None]
  - INJECTION SITE INDURATION [None]
  - INJECTION SITE PAIN [None]
